FAERS Safety Report 4673706-7 (Version None)
Quarter: 2005Q2

REPORT INFORMATION
  Report Type: 
  Country: None (occurrence: None)
  Receive Date: 20050523
  Receipt Date: 20050510
  Transmission Date: 20051028
  Serious: Yes (Hospitalization)
  Sender: FDA-Public Use
  Company Number: 2005BI005702

PATIENT
  Age: 29 Year
  Sex: Female
  Weight: 81.1939 kg

DRUGS (3)
  1. AVONEX [Suspect]
     Indication: MULTIPLE SCLEROSIS
     Dosage: 30 UG;QW; IM
     Route: 030
     Dates: start: 19980501
  2. AVONEX [Suspect]
     Indication: MULTIPLE SCLEROSIS
     Dosage: 30 UG; QW; IM
     Route: 030
  3. VITAMINS [Concomitant]

REACTIONS (7)
  - HAEMATOCRIT DECREASED [None]
  - MENSTRUATION IRREGULAR [None]
  - OPHTHALMOPLEGIA [None]
  - POST PROCEDURAL HAEMORRHAGE [None]
  - SUTURE RUPTURE [None]
  - UTERINE PROLAPSE [None]
  - VAGINAL HAEMORRHAGE [None]
